FAERS Safety Report 23783712 (Version 1)
Quarter: 2024Q2

REPORT INFORMATION
  Report Type: Spontaneous
  Country: US (occurrence: US)
  Receive Date: 20240425
  Receipt Date: 20240425
  Transmission Date: 20240716
  Serious: Yes (Hospitalization)
  Sender: FDA-Public Use
  Company Number: US-MYLANLABS-2024M1037045

PATIENT
  Age: 76 Year
  Sex: Male

DRUGS (7)
  1. FUROSEMIDE [Suspect]
     Active Substance: FUROSEMIDE
     Indication: Inferior vena cava syndrome
     Dosage: UNK; RECEIVED DRIP
     Route: 065
  2. FUROSEMIDE [Suspect]
     Active Substance: FUROSEMIDE
     Indication: Acute kidney injury
  3. METOLAZONE [Suspect]
     Active Substance: METOLAZONE
     Indication: Inferior vena cava syndrome
     Dosage: UNK
     Route: 065
  4. METOLAZONE [Suspect]
     Active Substance: METOLAZONE
     Indication: Acute kidney injury
  5. ALBUMIN HUMAN [Suspect]
     Active Substance: ALBUMIN HUMAN
     Indication: Inferior vena cava syndrome
     Dosage: UNK; RECEIVED DRIP
     Route: 042
  6. ALBUMIN HUMAN [Suspect]
     Active Substance: ALBUMIN HUMAN
     Indication: Acute kidney injury
  7. NOREPINEPHRINE [Concomitant]
     Active Substance: NOREPINEPHRINE\NOREPINEPHRINE BITARTRATE
     Indication: Hypotension
     Dosage: UNK
     Route: 065

REACTIONS (1)
  - Drug ineffective [Unknown]
